FAERS Safety Report 9667082 (Version 1)
Quarter: 2013Q4

REPORT INFORMATION
  Report Type: Spontaneous
  Country: US (occurrence: US)
  Receive Date: 20131104
  Receipt Date: 20131104
  Transmission Date: 20140711
  Serious: No
  Sender: FDA-Public Use
  Company Number: US-BIOGENIDEC-2013BI089734

PATIENT
  Sex: Female

DRUGS (6)
  1. TECFIDERA [Suspect]
     Indication: PRODUCT USED FOR UNKNOWN INDICATION
     Route: 048
     Dates: start: 20130819
  2. KRILL OIL [Concomitant]
  3. MULTIVITAMIN [Concomitant]
  4. COENZYME Q10 [Concomitant]
  5. VITAMIN B12 [Concomitant]
  6. VITAMIN D3 [Concomitant]

REACTIONS (1)
  - Flushing [Unknown]
